FAERS Safety Report 22283792 (Version 2)
Quarter: 2023Q2

REPORT INFORMATION
  Report Type: Report from Study
  Country: US (occurrence: US)
  Receive Date: 20230504
  Receipt Date: 20230508
  Transmission Date: 20230722
  Serious: No
  Sender: FDA-Public Use
  Company Number: US-002147023-NVSC2023US099321

PATIENT
  Sex: Male
  Weight: 151.93 kg

DRUGS (12)
  1. ALPRAZOLAM [Suspect]
     Active Substance: ALPRAZOLAM
     Indication: Psoriasis
     Dosage: 1 MG
     Route: 048
  2. IBUPROFEN [Suspect]
     Active Substance: IBUPROFEN
     Indication: Psoriasis
     Dosage: 200 MG
     Route: 048
  3. ACETAMINOPHEN [Suspect]
     Active Substance: ACETAMINOPHEN
     Indication: Psoriasis
     Dosage: 25 MG
     Route: 048
  4. WARFARIN [Suspect]
     Active Substance: WARFARIN
     Indication: Psoriasis
     Dosage: 4 MG
     Route: 048
  5. WARFARIN [Suspect]
     Active Substance: WARFARIN
     Dosage: 5 MG, PRN
     Route: 048
  6. WARFARIN [Suspect]
     Active Substance: WARFARIN
     Dosage: 6 MG, PRN
     Route: 048
  7. MECLIZINE [Suspect]
     Active Substance: MECLIZINE HYDROCHLORIDE
     Indication: Psoriasis
     Dosage: 25 MG
     Route: 048
  8. FOLIC ACID [Suspect]
     Active Substance: FOLIC ACID
     Indication: Psoriasis
     Dosage: 1 MG
     Route: 048
  9. FLECAINIDE [Suspect]
     Active Substance: FLECAINIDE
     Indication: Psoriasis
     Dosage: 100 MG
     Route: 048
  10. MINERALS\VITAMINS [Suspect]
     Active Substance: MINERALS\VITAMINS
     Indication: Psoriasis
     Dosage: UNK
     Route: 048
  11. ACETAMINOPHEN [Suspect]
     Active Substance: ACETAMINOPHEN
     Indication: Psoriasis
     Dosage: UNK (325/5MG)
     Route: 048
  12. VITAMINS [Suspect]
     Active Substance: VITAMINS
     Indication: Psoriasis
     Dosage: UNK
     Route: 048

REACTIONS (10)
  - Skin lesion [Unknown]
  - Psoriasis [Unknown]
  - Skin irritation [Unknown]
  - Erythema [Unknown]
  - Skin ulcer [Unknown]
  - Aspartate aminotransferase increased [Unknown]
  - Blood creatinine increased [Unknown]
  - Mean cell haemoglobin increased [Unknown]
  - Glomerular filtration rate decreased [Unknown]
  - Drug ineffective [Unknown]
